FAERS Safety Report 6091395-4 (Version None)
Quarter: 2009Q1

REPORT INFORMATION
  Report Type: 
  Country: None (occurrence: None)
  Receive Date: 20090225
  Receipt Date: 20081222
  Transmission Date: 20090719
  Serious: No
  Sender: FDA-Public Use
  Company Number: A0760023A

PATIENT
  Age: 40 Year
  Sex: Female
  Weight: 69.5 kg

DRUGS (3)
  1. VERAMYST [Suspect]
     Dates: start: 20081205, end: 20081206
  2. AZITHROMYCIN [Concomitant]
  3. MEDROL [Concomitant]

REACTIONS (5)
  - ERYTHEMA [None]
  - NASAL DISCOMFORT [None]
  - PAIN [None]
  - SKIN DISORDER [None]
  - SWELLING [None]
